FAERS Safety Report 7399225-5 (Version None)
Quarter: 2011Q1

REPORT INFORMATION
  Report Type: 
  Country: None (occurrence: None)
  Receive Date: 20110301
  Receipt Date: 20100211
  Transmission Date: 20110831
  Serious: Yes (Hospitalization, Other)
  Sender: FDA-Public Use
  Company Number: RB-20782-2009

PATIENT
  Sex: Female
  Weight: 2.4 kg

DRUGS (4)
  1. SUBOXONE [Suspect]
     Indication: DRUG DEPENDENCE
     Dosage: (8 MG QD TRANSPLACENTAL)
     Route: 064
     Dates: start: 20090101, end: 20090916
  2. XANAX XR [Concomitant]
  3. EFFEXOR [Concomitant]
  4. ADDERALL 10 [Concomitant]

REACTIONS (3)
  - DRUG WITHDRAWAL SYNDROME NEONATAL [None]
  - DRUG WITHDRAWAL SYNDROME [None]
  - DRUG EXPOSURE DURING PREGNANCY [None]
